FAERS Safety Report 4957790-9 (Version None)
Quarter: 2006Q1

REPORT INFORMATION
  Report Type: 
  Country: None (occurrence: None)
  Receive Date: 20060330
  Receipt Date: 20060210
  Transmission Date: 20060701
  Serious: Yes (Hospitalization)
  Sender: FDA-Public Use
  Company Number: US-BRISTOL-MYERS SQUIBB COMPANY-13279435

PATIENT
  Age: 30 Year
  Sex: Female
  Weight: 53 kg

DRUGS (4)
  1. CETUXIMAB [Suspect]
     Indication: OESOPHAGEAL SQUAMOUS CELL CARCINOMA
     Dosage: 400 MG/M2 X 1 DOSE, THEN 250 MG/M2 DAYS 1,8,22,29,36 (TOTAL 2116 MG). HELD.
     Dates: start: 20060131, end: 20060131
  2. CARBOPLATIN [Suspect]
     Indication: OESOPHAGEAL SQUAMOUS CELL CARCINOMA
     Dosage: GIVEN AT AUC 2 DAYS 1,8,22,29,36 (TOTAL OF 1138 MG). HELD.
     Dates: start: 20060131, end: 20060131
  3. PACLITAXEL [Suspect]
     Indication: OESOPHAGEAL SQUAMOUS CELL CARCINOMA
     Dosage: GIVEN DAYS 1,8,22,29,36 (TOTAL OF 380 MG). HELD.
     Dates: start: 20060131, end: 20060131
  4. RADIATION THERAPY [Suspect]
     Indication: OESOPHAGEAL SQUAMOUS CELL CARCINOMA
     Dosage: REC'D FROM 20-DEC-2005 TO 31-JAN-2006 (50.4 GY).
     Dates: start: 20060131, end: 20060131

REACTIONS (3)
  - INFECTION [None]
  - MUCOSAL INFLAMMATION [None]
  - PYREXIA [None]
